FAERS Safety Report 5565426-1 (Version None)
Quarter: 2007Q4

REPORT INFORMATION
  Report Type: 
  Country: None (occurrence: None)
  Receive Date: 20071218
  Receipt Date: 20071206
  Transmission Date: 20080405
  Serious: Yes (Other)
  Sender: FDA-Public Use
  Company Number: BR-PFIZER INC-2007104328

PATIENT
  Age: 35 Year
  Sex: Female

DRUGS (2)
  1. MEDROXYPROGESTERONE ACETATE [Suspect]
     Indication: HORMONE REPLACEMENT THERAPY
     Dosage: DAILY DOSE:5MG-FREQ:1XDAY, 10 DAYS/MONTH
  2. ESTROGENS CONJUGATED [Suspect]
     Indication: HORMONE REPLACEMENT THERAPY
     Dosage: DAILY DOSE:.625MG-FREQ:1/DAY/30 DAYS

REACTIONS (7)
  - BLOOD CHOLESTEROL INCREASED [None]
  - CONDITION AGGRAVATED [None]
  - DYSLIPIDAEMIA [None]
  - INTERSTITIAL LUNG DISEASE [None]
  - OSTEOPENIA [None]
  - PREMATURE MENOPAUSE [None]
  - SCLERODERMA [None]
